FAERS Safety Report 9816058 (Version 1)
Quarter: 2014Q1

REPORT INFORMATION
  Report Type: Spontaneous
  Country: FR (occurrence: FR)
  Receive Date: 20140114
  Receipt Date: 20140114
  Transmission Date: 20141002
  Serious: Yes (Life-Threatening, Hospitalization, Other)
  Sender: FDA-Public Use
  Company Number: FR-ELI_LILLY_AND_COMPANY-FR201401002667

PATIENT
  Age: 23 Year
  Sex: Male
  Weight: 110 kg

DRUGS (2)
  1. ZYPREXA [Suspect]
     Indication: PSYCHOTIC DISORDER
     Dosage: 15 MG, QD
     Route: 048
     Dates: end: 20131209
  2. PARKINANE LP [Concomitant]
     Dosage: 5 MG, QD
     Route: 065
     Dates: end: 20131209

REACTIONS (5)
  - Diabetic ketoacidosis [Recovering/Resolving]
  - Syncope [Unknown]
  - Chest pain [Unknown]
  - Type 1 diabetes mellitus [Not Recovered/Not Resolved]
  - Weight decreased [Unknown]
